FAERS Safety Report 7997994-4 (Version None)
Quarter: 2011Q4

REPORT INFORMATION
  Report Type: 
  Country: None (occurrence: None)
  Receive Date: 20111221
  Receipt Date: 20110119
  Transmission Date: 20120403
  Serious: No
  Sender: FDA-Public Use
  Company Number: US-GLAXOSMITHKLINE-A0720998A

PATIENT
  Age: 43 Year
  Sex: Male
  Weight: 89.81 kg

DRUGS (3)
  1. LOVAZA [Suspect]
     Indication: BLOOD TRIGLYCERIDES INCREASED
     Dosage: 4G PER DAY
     Route: 048
     Dates: start: 20080201
  2. NO CONCURRENT MEDICATIONS [Concomitant]
  3. INDERAL                            /00030001/ [Concomitant]
     Indication: PRODUCT USED FOR UNKNOWN INDICATION

REACTIONS (1)
  - DYSGEUSIA [None]
